FAERS Safety Report 8989633 (Version 1)
Quarter: 2012Q4

REPORT INFORMATION
  Report Type: 
  Country: FR (occurrence: FR)
  Receive Date: 20121228
  Receipt Date: 20121228
  Transmission Date: 20130627
  Serious: Yes (Hospitalization)
  Sender: FDA-Public Use
  Company Number: FR-009507513-1212FRA009610

PATIENT
  Age: 66 Year
  Sex: Male

DRUGS (9)
  1. STROMECTOL [Suspect]
     Indication: ACARODERMATITIS
     Dosage: 1 DF, qd
     Route: 048
     Dates: start: 20120824, end: 20120824
  2. ASCABIOL [Suspect]
     Indication: ACARODERMATITIS
     Dosage: 1 DF, qd
     Dates: start: 20120824, end: 20120825
  3. CHAMPIX [Suspect]
     Indication: TOBACCO ABUSE
     Dosage: 0.5 DF, qd
     Route: 048
     Dates: start: 20120820, end: 20120823
  4. BIPERIDYS [Concomitant]
  5. NICOTINELL [Concomitant]
  6. KARDEGIC [Concomitant]
  7. NITRIDERM-TTS [Concomitant]
  8. PARIET [Concomitant]
  9. SERTRALINE HYDROCHLORIDE [Concomitant]

REACTIONS (9)
  - Rash maculo-papular [Recovered/Resolved]
  - Purpura [Recovered/Resolved]
  - Nausea [None]
  - Vomiting [None]
  - Diarrhoea [None]
  - Inflammation [None]
  - Pruritus [None]
  - Rash erythematous [None]
  - Petechiae [None]
